FAERS Safety Report 7945115-6 (Version None)
Quarter: 2011Q4

REPORT INFORMATION
  Report Type: 
  Country: None (occurrence: None)
  Receive Date: 20111129
  Receipt Date: 20111129
  Transmission Date: 20120403
  Serious: Yes (Hospitalization)
  Sender: FDA-Public Use
  Company Number: None

PATIENT
  Age: 51 Year
  Sex: Female
  Weight: 54 kg

DRUGS (7)
  1. ARSENIC TRIOXIDE [Suspect]
     Indication: SMALL CELL LUNG CANCER STAGE UNSPECIFIED
     Dosage: 19.2 MG
     Route: 042
     Dates: start: 20111005, end: 20111028
  2. HYDROCHLOROTHIAZIDE [Concomitant]
  3. OXYCODONE HCL [Concomitant]
  4. PANTOPRAZOLE [Concomitant]
  5. VALSARTAN [Concomitant]
  6. CLONAZEPAM [Concomitant]
  7. DOCUSATE [Concomitant]

REACTIONS (6)
  - SMALL CELL LUNG CANCER STAGE UNSPECIFIED [None]
  - NEOPLASM PROGRESSION [None]
  - CONFUSIONAL STATE [None]
  - PYREXIA [None]
  - HYPOTENSION [None]
  - NEUTROPENIA [None]
